FAERS Safety Report 9772040 (Version 1)
Quarter: 2013Q4

REPORT INFORMATION
  Report Type: Other
  Country: IT (occurrence: IT)
  Receive Date: 20131219
  Receipt Date: 20131219
  Transmission Date: 20140711
  Serious: Yes (Death, Disabling, Other)
  Sender: FDA-Public Use
  Company Number: IT-MPIJNJ-2013JNJ001294

PATIENT
  Sex: 0

DRUGS (10)
  1. VELCADE [Suspect]
     Indication: PLASMA CELL MYELOMA
     Dosage: UNK
     Route: 042
     Dates: start: 20130730, end: 20131107
  2. THALIDOMIDE [Suspect]
     Indication: PLASMA CELL MYELOMA
     Dosage: 50 MG, UNK
     Route: 065
     Dates: start: 20130916, end: 20131107
  3. PLAVIX [Concomitant]
     Indication: MYOCARDIAL ISCHAEMIA
     Dosage: 75 MG, UNK
  4. CORDARONE [Concomitant]
     Indication: ARRHYTHMIA
     Dosage: 200 MG, UNK
  5. VILDAGLIPTIN [Concomitant]
     Dosage: 50 MG, UNK
  6. REPAGLINIDE [Concomitant]
     Dosage: 3 MG, UNK
  7. ALLOPURINOL [Concomitant]
     Dosage: 300 MG, UNK
  8. PANTOPRAZOLE [Concomitant]
     Dosage: 20 MG, UNK
  9. ISOSORBIDE [Concomitant]
     Dosage: 50 MG, UNK
  10. FUROSEMIDE [Concomitant]
     Dosage: 25 MG, UNK

REACTIONS (2)
  - Neuropathy peripheral [Fatal]
  - Pancreatitis acute [Fatal]
